FAERS Safety Report 9473695 (Version 1)
Quarter: 2013Q3

REPORT INFORMATION
  Report Type: Spontaneous
  Country: US (occurrence: US)
  Receive Date: 20130823
  Receipt Date: 20130823
  Transmission Date: 20140515
  Serious: No
  Sender: FDA-Public Use
  Company Number: US-BRISTOL-MYERS SQUIBB COMPANY-16910556

PATIENT
  Age: 63 Year
  Sex: Male

DRUGS (12)
  1. SPRYCEL [Suspect]
     Dosage: TAKING SPRYCEL FROM 01AUG(YEAR UNKNOWN).
  2. BENICAR HCT [Concomitant]
     Dosage: 1DF:40/25MG
  3. NORVASC [Concomitant]
  4. BYSTOLIC [Concomitant]
  5. CRESTOR [Concomitant]
  6. PLAVIX [Concomitant]
  7. ZANTAC [Concomitant]
  8. LOVAZA [Concomitant]
  9. GLUCOSAMINE [Concomitant]
  10. CHONDROITIN [Concomitant]
  11. MULTIVITAMIN [Concomitant]
  12. BABY ASPIRIN [Concomitant]

REACTIONS (2)
  - Diarrhoea [Unknown]
  - Photosensitivity reaction [Unknown]
